FAERS Safety Report 9999736 (Version 7)
Quarter: 2015Q2

REPORT INFORMATION
  Report Type: Report from Study
  Country: PL (occurrence: PL)
  Receive Date: 20140312
  Receipt Date: 20150626
  Transmission Date: 20150821
  Serious: Yes (Hospitalization)
  Sender: FDA-Public Use
  Company Number: PL-UCBSA-111585

PATIENT
  Age: 66 Year
  Sex: Female
  Weight: 83 kg

DRUGS (17)
  1. CERTOLIZUMAB PEGOL PSA [Suspect]
     Active Substance: CERTOLIZUMAB PEGOL
     Indication: PSORIATIC ARTHROPATHY
     Dosage: 200 MG, EV 2 WEEKS(QOW)
     Route: 058
     Dates: start: 20110328, end: 20131217
  2. XARTAN [Concomitant]
     Active Substance: LOSARTAN POTASSIUM
     Indication: HYPERTENSION
     Dosage: 50 MG, 2X/DAY (BID)
  3. FAMOGAST [Concomitant]
     Indication: GASTRODUODENITIS
     Dosage: 40 MG, ONCE DAILY (QD)
     Dates: start: 20090807
  4. VASILIP [Concomitant]
     Indication: HYPERCHOLESTEROLAEMIA
     Dosage: 20 MG, ONCE DAILY (QD)
     Dates: start: 2008
  5. PRESLONG [Concomitant]
     Indication: HYPERTENSION
     Dosage: 5 MG, ONCE DAILY (QD)
     Dates: start: 2011
  6. BETAHISTINE DIHYDROCHLORIDE [Concomitant]
     Active Substance: BETAHISTINE
     Dosage: 16 MG, 2X/DAY (BID)
     Dates: start: 20130610, end: 20131016
  7. HEPATIL [Concomitant]
     Indication: GASTRODUODENITIS
     Dosage: 300 MG, 3X/DAY (TID)
     Dates: start: 2010
  8. CONTIX [Concomitant]
     Indication: GASTRODUODENITIS
     Dosage: 20 MG, ONCE DAILY (QD)
     Dates: start: 20090302
  9. TORAMIDE [Concomitant]
     Indication: HYPERTENSION
     Dosage: 5 MG, 2X/DAY (BID)
  10. MILURIT [Concomitant]
     Active Substance: ALLOPURINOL
     Indication: HYPERTENSION
     Dosage: 100 MG, ONCE DAILY (QD)
     Dates: start: 2001
  11. DRIPTANE [Concomitant]
     Active Substance: OXYBUTYNIN
     Indication: URINARY INCONTINENCE
     Dosage: 5 MG, ONCE DAILY (QD)
     Dates: start: 2008
  12. FRAXIPARINE [Concomitant]
     Active Substance: NADROPARIN CALCIUM
     Indication: EMBOLISM VENOUS
     Dosage: .3 ?L, 2X/DAY (BID)
  13. BETAHISTINE DIHYDROCHLORIDE [Concomitant]
     Active Substance: BETAHISTINE
     Indication: DIZZINESS
     Dosage: 24 MG, 2X/DAY (BID)
     Dates: start: 20131017
  14. METHOTREXATE [Concomitant]
     Active Substance: METHOTREXATE
     Dosage: UNK
     Dates: start: 201005
  15. METYPRED [Concomitant]
     Active Substance: METHYLPREDNISOLONE
     Indication: PSORIATIC ARTHROPATHY
     Dosage: 4 MG, ONCE DAILY (QD)
     Dates: start: 20100514
  16. KALDYUM [Concomitant]
     Active Substance: POTASSIUM CHLORIDE
     Indication: MINERAL SUPPLEMENTATION
     Dosage: 600 MG, 3X/DAY (TID)
     Dates: start: 20110719
  17. KALIPOZ [Concomitant]
     Active Substance: POTASSIUM CHLORIDE
     Indication: PROPHYLAXIS
     Dosage: 391 MG, 2X/DAY (BID)

REACTIONS (1)
  - Ovarian cancer [Not Recovered/Not Resolved]

NARRATIVE: CASE EVENT DATE: 20131230
